FAERS Safety Report 10285371 (Version 3)
Quarter: 2014Q3

REPORT INFORMATION
  Report Type: Spontaneous
  Country: US (occurrence: US)
  Receive Date: 20140708
  Receipt Date: 20140821
  Transmission Date: 20150326
  Serious: Yes (Hospitalization, Disabling, Other)
  Sender: FDA-Public Use
  Company Number: PHEH2014US013335

PATIENT
  Age: 28 Year
  Sex: Female
  Weight: 93.4 kg

DRUGS (2)
  1. ORTHO TRI CYCLEN [Concomitant]
     Active Substance: ETHINYL ESTRADIOL\NORGESTIMATE
     Dosage: 1 DF, QD
     Route: 048
     Dates: start: 201308, end: 20140625
  2. GILENYA [Suspect]
     Active Substance: FINGOLIMOD HYDROCHLORIDE
     Indication: MULTIPLE SCLEROSIS
     Dosage: 0.5 MG, QD
     Route: 048
     Dates: start: 20131107, end: 20140625

REACTIONS (10)
  - Intracranial pressure increased [Unknown]
  - Confusional state [Unknown]
  - Carotid artery thrombosis [Unknown]
  - Haemorrhagic transformation stroke [Unknown]
  - Cerebrovascular accident [Not Recovered/Not Resolved]
  - Asthenia [Unknown]
  - Hemiparesis [Unknown]
  - Aphasia [Recovered/Resolved with Sequelae]
  - Cerebral artery occlusion [Unknown]
  - Brain oedema [Unknown]

NARRATIVE: CASE EVENT DATE: 20140625
